FAERS Safety Report 19518943 (Version 2)
Quarter: 2022Q2

REPORT INFORMATION
  Report Type: Spontaneous
  Country: IT (occurrence: IT)
  Receive Date: 20210712
  Receipt Date: 20220504
  Transmission Date: 20220721
  Serious: Yes (Life-Threatening)
  Sender: FDA-Public Use
  Company Number: None

PATIENT
  Age: 61 Year
  Weight: 95 kg

DRUGS (2)
  1. XADAGO [Suspect]
     Active Substance: SAFINAMIDE MESYLATE
     Indication: Parkinson^s disease
     Dates: start: 20210527, end: 20210611
  2. VENLAFAXINE [Concomitant]
     Active Substance: VENLAFAXINE HYDROCHLORIDE
     Indication: Depression
     Dates: start: 20210527, end: 20210611

REACTIONS (3)
  - Shock [Recovering/Resolving]
  - Hyperpyrexia [Recovering/Resolving]
  - Muscle injury [Recovering/Resolving]

NARRATIVE: CASE EVENT DATE: 20210611
